FAERS Safety Report 20411291 (Version 1)
Quarter: 2022Q1

REPORT INFORMATION
  Report Type: Spontaneous
  Country: NL (occurrence: NL)
  Receive Date: 20220201
  Receipt Date: 20220201
  Transmission Date: 20220424
  Serious: Yes (Other)
  Sender: FDA-Public Use
  Company Number: None

PATIENT
  Age: 11 Year
  Sex: Male

DRUGS (1)
  1. HEMLIBRA [Suspect]
     Active Substance: EMICIZUMAB-KXWH
     Indication: Factor VIII deficiency
     Dosage: EMICIZUMAB INJVLST 30MG/ML / HEMLIBRA INJVLST 30MG/1ML (30MG/ML) FLACON
     Route: 065
     Dates: start: 2020

REACTIONS (6)
  - Peripheral swelling [Unknown]
  - Pruritus [Unknown]
  - Rash erythematous [Unknown]
  - Arthralgia [Unknown]
  - Limb discomfort [Unknown]
  - Inhibiting antibodies [Unknown]

NARRATIVE: CASE EVENT DATE: 20200901
